FAERS Safety Report 14100439 (Version 1)
Quarter: 2017Q4

REPORT INFORMATION
  Report Type: Spontaneous
  Country: JP (occurrence: JP)
  Receive Date: 20171017
  Receipt Date: 20171017
  Transmission Date: 20180321
  Serious: Yes (Other)
  Sender: FDA-Public Use
  Company Number: JP-GILEAD-2017-0298585

PATIENT
  Age: 68 Year
  Sex: Female

DRUGS (2)
  1. ZEFIX [Suspect]
     Active Substance: LAMIVUDINE
     Indication: CHRONIC HEPATITIS B
     Dosage: UNK
     Route: 048
  2. HEPSERA [Suspect]
     Active Substance: ADEFOVIR DIPIVOXIL
     Indication: CHRONIC HEPATITIS B
     Dosage: UNK
     Route: 048

REACTIONS (9)
  - Hypouricaemia [Unknown]
  - Weight decreased [Unknown]
  - Genotype drug resistance test positive [Unknown]
  - Hypophosphataemia [Recovering/Resolving]
  - Pain in extremity [Unknown]
  - Femoral neck fracture [Unknown]
  - Fanconi syndrome acquired [Unknown]
  - Osteoporosis [Unknown]
  - Muscular weakness [Recovered/Resolved]
